FAERS Safety Report 23486945 (Version 4)
Quarter: 2024Q1

REPORT INFORMATION
  Report Type: Spontaneous
  Country: PL (occurrence: PL)
  Receive Date: 20240206
  Receipt Date: 20240311
  Transmission Date: 20240410
  Serious: Yes (Hospitalization, Other)
  Sender: FDA-Public Use
  Company Number: PL-PFIZER INC-PV202400014969

PATIENT
  Age: 80 Year
  Sex: Female

DRUGS (10)
  1. ENCORAFENIB [Suspect]
     Active Substance: ENCORAFENIB
     Indication: Malignant melanoma
     Dosage: UNK (FIRST COURSE)
     Dates: start: 202202, end: 2023
  2. ENCORAFENIB [Suspect]
     Active Substance: ENCORAFENIB
     Dosage: UNK (SECOND COURSE)
     Dates: start: 202203
  3. ENCORAFENIB [Suspect]
     Active Substance: ENCORAFENIB
     Dosage: UNK (THIRD COURSE)
  4. ENCORAFENIB [Suspect]
     Active Substance: ENCORAFENIB
     Dosage: UNK (FOUTH COURSE)
  5. ENCORAFENIB [Suspect]
     Active Substance: ENCORAFENIB
     Dosage: UNK
     Dates: end: 202302
  6. BINIMETINIB [Suspect]
     Active Substance: BINIMETINIB
     Indication: Malignant melanoma
     Dosage: UNK (FIRST COURSE)
     Dates: start: 202202, end: 2023
  7. BINIMETINIB [Suspect]
     Active Substance: BINIMETINIB
     Dosage: UNK (SECOND COURSE)
     Dates: start: 202203
  8. BINIMETINIB [Suspect]
     Active Substance: BINIMETINIB
     Dosage: UNK (THIRD COURSE)
  9. BINIMETINIB [Suspect]
     Active Substance: BINIMETINIB
     Dosage: UNK (FOUTH COURSE)
  10. BINIMETINIB [Suspect]
     Active Substance: BINIMETINIB
     Dosage: UNK
     Dates: end: 202302

REACTIONS (9)
  - Hepatotoxicity [Recovering/Resolving]
  - Diarrhoea [Recovered/Resolved]
  - Asthenia [Unknown]
  - Vomiting [Unknown]
  - General physical health deterioration [Not Recovered/Not Resolved]
  - Pain [Unknown]
  - Skin lesion [Unknown]
  - Lymphadenopathy [Unknown]
  - Neoplasm progression [Unknown]

NARRATIVE: CASE EVENT DATE: 20220101
